FAERS Safety Report 20882882 (Version 1)
Quarter: 2022Q2

REPORT INFORMATION
  Report Type: Spontaneous
  Country: US (occurrence: US)
  Receive Date: 20220527
  Receipt Date: 20220527
  Transmission Date: 20220720
  Serious: No
  Sender: FDA-Public Use
  Company Number: US-BRISTOL-MYERS SQUIBB COMPANY-2022-048288

PATIENT
  Age: 69 Year
  Sex: Female

DRUGS (1)
  1. REVLIMID [Suspect]
     Active Substance: LENALIDOMIDE
     Indication: Monoclonal gammopathy
     Dosage: D1-21 Q 28 DAYS
     Route: 048
     Dates: start: 20220425, end: 20220501

REACTIONS (2)
  - White blood cell count decreased [Recovered/Resolved]
  - Intentional product use issue [Unknown]
